FAERS Safety Report 22033241 (Version 1)
Quarter: 2023Q1

REPORT INFORMATION
  Report Type: Spontaneous
  Country: US (occurrence: US)
  Receive Date: 20230224
  Receipt Date: 20230224
  Transmission Date: 20230418
  Serious: Yes (Hospitalization, Other)
  Sender: FDA-Public Use
  Company Number: US-MYLANLABS-2023M1019551

PATIENT
  Age: 12 Year
  Sex: Male

DRUGS (10)
  1. SUNITINIB [Suspect]
     Active Substance: SUNITINIB
     Indication: Pancreatic neuroendocrine tumour metastatic
     Dosage: UNK
     Route: 065
  2. SUNITINIB [Suspect]
     Active Substance: SUNITINIB
     Indication: Cushing^s syndrome
  3. CABERGOLINE [Suspect]
     Active Substance: CABERGOLINE
     Indication: Pancreatic neuroendocrine tumour metastatic
     Dosage: UNK
     Route: 065
  4. CABERGOLINE [Suspect]
     Active Substance: CABERGOLINE
     Indication: Cushing^s syndrome
  5. SPIRONOLACTONE [Suspect]
     Active Substance: SPIRONOLACTONE
     Indication: Pancreatic neuroendocrine tumour metastatic
     Dosage: UNK
     Route: 065
  6. SPIRONOLACTONE [Suspect]
     Active Substance: SPIRONOLACTONE
     Indication: Cushing^s syndrome
  7. LANREOTIDE [Suspect]
     Active Substance: LANREOTIDE
     Indication: Pancreatic neuroendocrine tumour metastatic
     Dosage: UNK
     Route: 065
  8. LANREOTIDE [Suspect]
     Active Substance: LANREOTIDE
     Indication: Cushing^s syndrome
  9. METYRAPONE [Suspect]
     Active Substance: METYRAPONE
     Indication: Pancreatic neuroendocrine tumour metastatic
     Dosage: UNK
     Route: 065
  10. METYRAPONE [Suspect]
     Active Substance: METYRAPONE
     Indication: Cushing^s syndrome
     Dosage: UNK (DOSE INCREASED)
     Route: 065

REACTIONS (5)
  - Drug ineffective [Unknown]
  - Rebound effect [Unknown]
  - Pancreatic neuroendocrine tumour metastatic [Unknown]
  - Cushing^s syndrome [Unknown]
  - Off label use [Unknown]
